FAERS Safety Report 10498460 (Version 2)
Quarter: 2014Q4

REPORT INFORMATION
  Report Type: Spontaneous
  Country: MX (occurrence: MX)
  Receive Date: 20141006
  Receipt Date: 20141029
  Transmission Date: 20150528
  Serious: Yes (Death)
  Sender: FDA-Public Use
  Company Number: MX-BRISTOL-MYERS SQUIBB COMPANY-21453311

PATIENT
  Age: 50 Year
  Sex: Female

DRUGS (2)
  1. YERVOY [Suspect]
     Active Substance: IPILIMUMAB
     Indication: LUNG CANCER METASTATIC
     Route: 042
     Dates: start: 20140908
  2. YERVOY [Suspect]
     Active Substance: IPILIMUMAB
     Indication: PNEUMONIA
     Route: 042
     Dates: start: 20140908

REACTIONS (1)
  - Pneumonia [Fatal]

NARRATIVE: CASE EVENT DATE: 20140929
